FAERS Safety Report 25623538 (Version 1)
Quarter: 2025Q3

REPORT INFORMATION
  Report Type: Spontaneous
  Country: EU (occurrence: EU)
  Receive Date: 20250730
  Receipt Date: 20250730
  Transmission Date: 20251021
  Serious: Yes (Hospitalization, Other)
  Sender: UCB
  Company Number: EU-ATNAHS-2025-PMNV-FR000001

PATIENT
  Sex: Female

DRUGS (8)
  1. KEPPRA [Suspect]
     Active Substance: LEVETIRACETAM
     Indication: Temporal lobe epilepsy
  2. KEPPRA [Suspect]
     Active Substance: LEVETIRACETAM
     Indication: Occipital lobe epilepsy
  3. CLOBAZAM [Suspect]
     Active Substance: CLOBAZAM
     Indication: Occipital lobe epilepsy
     Dates: start: 2007
  4. CLOBAZAM [Suspect]
     Active Substance: CLOBAZAM
     Indication: Temporal lobe epilepsy
  5. VALPROATE SODIUM [Suspect]
     Active Substance: VALPROATE SODIUM
     Indication: Temporal lobe epilepsy
  6. VALPROATE SODIUM [Suspect]
     Active Substance: VALPROATE SODIUM
     Indication: Occipital lobe epilepsy
  7. LAMICTAL [Suspect]
     Active Substance: LAMOTRIGINE
     Indication: Temporal lobe epilepsy
  8. LAMICTAL [Suspect]
     Active Substance: LAMOTRIGINE
     Indication: Occipital lobe epilepsy

REACTIONS (9)
  - Petit mal epilepsy [Unknown]
  - Partial seizures [Unknown]
  - Blindness transient [Unknown]
  - Loss of consciousness [Unknown]
  - Vomiting [Unknown]
  - Eye movement disorder [Unknown]
  - Fall [Unknown]
  - Hypertonia [Unknown]
  - Dyskinesia [Unknown]

NARRATIVE: CASE EVENT DATE: 20070101
